FAERS Safety Report 16423794 (Version 1)
Quarter: 2019Q2

REPORT INFORMATION
  Report Type: Spontaneous
  Country: US (occurrence: US)
  Receive Date: 20190613
  Receipt Date: 20190613
  Transmission Date: 20190711
  Serious: Yes (Death, Other)
  Sender: FDA-Public Use
  Company Number: US-B.I. PHARMACEUTICALS,INC./RIDGEFIELD-2019-BI-026163

PATIENT
  Age: 72 Year
  Sex: Female

DRUGS (1)
  1. PRADAXA [Suspect]
     Active Substance: DABIGATRAN ETEXILATE MESYLATE
     Indication: PRODUCT USED FOR UNKNOWN INDICATION
     Dosage: 1 CAPSULE TWICE A DAY;  FORM STRENGTH: 150 MG; FORMULATION: CAPSULE?ACTION(S) TAKEN: NOT APPLICABLE
     Route: 048
     Dates: start: 201704

REACTIONS (1)
  - Death [Fatal]

NARRATIVE: CASE EVENT DATE: 20190516
